FAERS Safety Report 12060550 (Version 2)
Quarter: 2016Q1

REPORT INFORMATION
  Report Type: Spontaneous
  Country: JP (occurrence: JP)
  Receive Date: 20160210
  Receipt Date: 20160309
  Transmission Date: 20160526
  Serious: Yes (Life-Threatening, Hospitalization)
  Sender: FDA-Public Use
  Company Number: JP-009507513-1602JPN003958

PATIENT
  Age: 66 Year
  Sex: Male
  Weight: 54 kg

DRUGS (8)
  1. TRAZENTA [Concomitant]
     Active Substance: LINAGLIPTIN
     Indication: DIABETES MELLITUS
     Dosage: 1 DF, PER 1 DAY (DIVIDED DOSE FREQUENCY UNKNOWN)
     Route: 048
     Dates: start: 20130731
  2. REBETOL [Suspect]
     Active Substance: RIBAVIRIN
     Indication: CHRONIC HEPATITIS C
     Dosage: 600 MG, QD (DIVIDED DOSE FREQUENCY UNKNOWN)
     Route: 048
     Dates: start: 20160113, end: 20160201
  3. CONIEL [Concomitant]
     Active Substance: BENIDIPINE HYDROCHLORIDE
     Indication: HYPERTENSION
     Dosage: 4 MG, PER 1 DAY (DIVIDED DOSE FREQUENCY UNKNOWN)
     Route: 048
  4. ADALAT CC [Concomitant]
     Active Substance: NIFEDIPINE
     Indication: HYPERTENSION
     Dosage: 20 MG, PER 1 DAY (DIVIDED DOSE FREQUENCY UNKNOWN)
     Route: 048
  5. ZESTRIL [Concomitant]
     Active Substance: LISINOPRIL
     Indication: HYPERTENSION
     Dosage: 10 MG, PER 1 DAY (DIVIDED DOSE FREQUENCY UNKNOWN)
     Route: 048
  6. LYRICA [Concomitant]
     Active Substance: PREGABALIN
     Indication: SPINAL OSTEOARTHRITIS
     Dosage: 50 MG, PER 1 DAY (DIVIDED DOSE FREQUENCY UNKNOWN)
     Route: 048
     Dates: start: 20130918
  7. TRAMCET [Concomitant]
     Active Substance: ACETAMINOPHEN\TRAMADOL
     Indication: SPINAL OSTEOARTHRITIS
     Dosage: 2 DF, PER 1 DAY (DIVIDED DOSE FREQUENCY UNKNOWN)
     Route: 048
     Dates: start: 20131002
  8. SOVALDI [Suspect]
     Active Substance: SOFOSBUVIR
     Indication: CHRONIC HEPATITIS C
     Dosage: 400 MG, QD (DIVIDED DOSE FREQUENCY UNKNOWN)
     Route: 048
     Dates: start: 20160113, end: 20160201

REACTIONS (2)
  - Acute coronary syndrome [Recovered/Resolved]
  - Anaemia [Recovered/Resolved]

NARRATIVE: CASE EVENT DATE: 20160131
